FAERS Safety Report 23728074 (Version 1)
Quarter: 2024Q2

REPORT INFORMATION
  Report Type: Other
  Country: AU (occurrence: AU)
  Receive Date: 20240410
  Receipt Date: 20240410
  Transmission Date: 20240716
  Serious: Yes (Hospitalization, Other)
  Sender: FDA-Public Use
  Company Number: AU-Innogenix, LLC-2155421

PATIENT
  Sex: Female

DRUGS (9)
  1. METRONIDAZOLE [Suspect]
     Active Substance: METRONIDAZOLE
     Indication: Appendicitis
     Route: 065
  2. AMOXICILLIN [Suspect]
     Active Substance: AMOXICILLIN
     Route: 048
  3. HYDROXYCHLOROQUINE [Concomitant]
     Active Substance: HYDROXYCHLOROQUINE
     Route: 065
  4. AZATHIOPRINE [Concomitant]
     Active Substance: AZATHIOPRINE
     Route: 065
  5. PERINDOPRIL [Concomitant]
     Active Substance: PERINDOPRIL
     Route: 065
  6. PREDNISOLONE [Concomitant]
     Active Substance: PREDNISOLONE
     Route: 065
  7. CIPROFLOXACIN [Suspect]
     Active Substance: CIPROFLOXACIN
     Route: 048
  8. CEPHALEXIN [Suspect]
     Active Substance: CEPHALEXIN
     Route: 048
  9. GENTAMICIN [Suspect]
     Active Substance: GENTAMICIN
     Route: 048

REACTIONS (3)
  - Renal tubular necrosis [Unknown]
  - Product use in unapproved indication [Unknown]
  - Acute kidney injury [Unknown]

NARRATIVE: CASE EVENT DATE: 20170101
